FAERS Safety Report 24411591 (Version 3)
Quarter: 2024Q4

REPORT INFORMATION
  Report Type: Report from Study
  Country: IT (occurrence: IT)
  Receive Date: 20241008
  Receipt Date: 20241108
  Transmission Date: 20250114
  Serious: No
  Sender: MERCK
  Company Number: IT-009507513-2410ITA002134

PATIENT
  Sex: Female

DRUGS (1)
  1. SOTATERCEPT [Suspect]
     Active Substance: SOTATERCEPT
     Dosage: UNK
     Dates: start: 20240528, end: 20240909

REACTIONS (2)
  - Thrombocytopenia [Unknown]
  - Gingival bleeding [Unknown]

NARRATIVE: CASE EVENT DATE: 20240910
